FAERS Safety Report 14092223 (Version 1)
Quarter: 2017Q4

REPORT INFORMATION
  Report Type: Spontaneous
  Country: US (occurrence: US)
  Receive Date: 20171014
  Receipt Date: 20171014
  Transmission Date: 20180321
  Serious: Yes (Life-Threatening, Hospitalization)
  Sender: FDA-Public Use
  Company Number: None

PATIENT
  Age: 62 Year
  Sex: Female
  Weight: 67.5 kg

DRUGS (1)
  1. REMICADE [Suspect]
     Active Substance: INFLIXIMAB
     Indication: COLITIS ULCERATIVE
     Dates: start: 20150101, end: 20161101

REACTIONS (4)
  - Bronchiectasis [None]
  - Pneumonia [None]
  - Immunosuppression [None]
  - Aspergillus test positive [None]

NARRATIVE: CASE EVENT DATE: 20161227
